FAERS Safety Report 6165734-X (Version None)
Quarter: 2009Q2

REPORT INFORMATION
  Report Type: 
  Country: None (occurrence: None)
  Receive Date: 20090423
  Receipt Date: 20090413
  Transmission Date: 20091009
  Serious: Yes (Death, Other)
  Sender: FDA-Public Use
  Company Number: US-BAXTER-2009BH003624

PATIENT
  Age: 29 Year
  Sex: Female
  Weight: 71 kg

DRUGS (11)
  1. HEPARIN SODIUM INJECTION [Suspect]
     Indication: CEREBRAL VENOUS THROMBOSIS
     Route: 065
     Dates: start: 20080304, end: 20080304
  2. HEPARIN SODIUM INJECTION [Suspect]
     Indication: SUPERIOR SAGITTAL SINUS THROMBOSIS
     Route: 065
     Dates: start: 20080304, end: 20080304
  3. HEPARIN AND 0.45% SODIUM CHLORIDE [Suspect]
     Indication: THROMBOSIS
     Route: 042
     Dates: start: 20080303, end: 20080304
  4. HEPARIN AND 0.45% SODIUM CHLORIDE [Suspect]
     Route: 042
     Dates: start: 20080303, end: 20080304
  5. HEPARIN AND 0.45% SODIUM CHLORIDE [Suspect]
     Route: 042
     Dates: start: 20080304, end: 20080304
  6. HEPARIN AND 0.45% SODIUM CHLORIDE [Suspect]
     Route: 042
     Dates: start: 20080304, end: 20080304
  7. HEPARIN AND 0.45% SODIUM CHLORIDE [Suspect]
     Route: 065
     Dates: start: 20080304, end: 20080306
  8. HEPARIN AND 0.45% SODIUM CHLORIDE [Suspect]
     Route: 065
     Dates: start: 20080304, end: 20080306
  9. NEXIUM                                  /UNK/ [Concomitant]
     Indication: DRUG USE FOR UNKNOWN INDICATION
     Route: 065
  10. MIRCETTE [Concomitant]
     Indication: CONTRACEPTION
     Route: 065
     Dates: start: 20080201
  11. YAZ [Concomitant]
     Indication: CONTRACEPTION
     Route: 065
     Dates: start: 20071001, end: 20080201

REACTIONS (10)
  - ANOREXIA [None]
  - BALANCE DISORDER [None]
  - CEREBRAL HAEMORRHAGE [None]
  - HEADACHE [None]
  - HYPERSENSITIVITY [None]
  - HYPOTENSION [None]
  - NAUSEA [None]
  - RESPIRATORY FAILURE [None]
  - SUPERIOR SAGITTAL SINUS THROMBOSIS [None]
  - UNRESPONSIVE TO STIMULI [None]
